FAERS Safety Report 14663446 (Version 6)
Quarter: 2021Q2

REPORT INFORMATION
  Report Type: Spontaneous
  Country: US (occurrence: US)
  Receive Date: 20180321
  Receipt Date: 20210520
  Transmission Date: 20210716
  Serious: Yes (Other)
  Sender: FDA-Public Use
  Company Number: US-PFIZER INC-2018111894

PATIENT
  Age: 66 Year
  Sex: Female
  Weight: 67.12 kg

DRUGS (2)
  1. RELPAX [Suspect]
     Active Substance: ELETRIPTAN HYDROBROMIDE
     Indication: HEADACHE
     Dosage: 40 MG, AS NEEDED, MAY REPEAT IN 2 HOURS (MAX 2 TABS/DAY)
     Route: 048
  2. RELPAX [Suspect]
     Active Substance: ELETRIPTAN HYDROBROMIDE
     Indication: MIGRAINE WITHOUT AURA

REACTIONS (8)
  - Altered state of consciousness [Unknown]
  - Gait disturbance [Unknown]
  - Drug ineffective [Unknown]
  - Fall [Unknown]
  - Spinal column injury [Unknown]
  - Confusional state [Unknown]
  - Recalled product administered [Unknown]
  - Muscle spasms [Unknown]

NARRATIVE: CASE EVENT DATE: 20190526
